FAERS Safety Report 19176299 (Version 10)
Quarter: 2021Q4

REPORT INFORMATION
  Report Type: Report from Study
  Country: US (occurrence: US)
  Receive Date: 20210424
  Receipt Date: 20211211
  Transmission Date: 20220303
  Serious: Yes (Other)
  Sender: FDA-Public Use
  Company Number: US-NOVARTISPH-NVSC2021US085803

PATIENT
  Age: 85 Year
  Sex: Female

DRUGS (8)
  1. BEOVU [Suspect]
     Active Substance: BROLUCIZUMAB-DBLL
     Indication: Neovascular age-related macular degeneration
     Dosage: 0.05 ML, Q2MO
     Route: 031
     Dates: start: 20200224
  2. BEOVU [Suspect]
     Active Substance: BROLUCIZUMAB-DBLL
     Dosage: 0.05 ML, Q2MO
     Route: 031
     Dates: start: 20200422
  3. BEOVU [Suspect]
     Active Substance: BROLUCIZUMAB-DBLL
     Dosage: 1 DF, Q2MO
     Route: 031
     Dates: start: 20200622
  4. BEOVU [Suspect]
     Active Substance: BROLUCIZUMAB-DBLL
     Dosage: UNK
     Route: 031
     Dates: start: 20210622
  5. OFLOXACIN [Concomitant]
     Active Substance: OFLOXACIN
     Indication: Antibiotic prophylaxis
     Dosage: UNK, QID
     Route: 047
     Dates: start: 20200224, end: 20200228
  6. OFLOXACIN [Concomitant]
     Active Substance: OFLOXACIN
     Dosage: UNK (4 DAYS)
     Route: 047
     Dates: start: 20200420, end: 20200424
  7. OFLOXACIN [Concomitant]
     Active Substance: OFLOXACIN
     Dosage: UNK (POST TREATMENT)
     Route: 047
     Dates: start: 20200622, end: 20200624
  8. COUMADIN [Concomitant]
     Active Substance: WARFARIN SODIUM
     Indication: Product used for unknown indication
     Dosage: UNK
     Route: 065

REACTIONS (13)
  - Loss of consciousness [Unknown]
  - Atrial fibrillation [Unknown]
  - Retinal tear [Unknown]
  - Cough [Unknown]
  - Visual field defect [Unknown]
  - Mydriasis [Unknown]
  - Fatigue [Unknown]
  - Anxiety [Unknown]
  - Madarosis [Unknown]
  - Feeling abnormal [Unknown]
  - Memory impairment [Unknown]
  - Product dose omission issue [Unknown]
  - Drug ineffective [Unknown]

NARRATIVE: CASE EVENT DATE: 20211105
